FAERS Safety Report 24972466 (Version 1)
Quarter: 2025Q1

REPORT INFORMATION
  Report Type: Report from Study
  Country: US (occurrence: US)
  Receive Date: 20250215
  Receipt Date: 20250215
  Transmission Date: 20250408
  Serious: Yes (Other)
  Sender: ALEXION PHARMACEUTICALS
  Company Number: US-AstraZeneca-2019SF51664

PATIENT
  Age: 89 Year

DRUGS (4)
  1. NEXIUM [Suspect]
     Active Substance: ESOMEPRAZOLE MAGNESIUM
  2. NEXIUM [Suspect]
     Active Substance: ESOMEPRAZOLE MAGNESIUM
     Dosage: GENERIC
  3. TOPROL XL [Suspect]
     Active Substance: METOPROLOL SUCCINATE
  4. BRILINTA [Suspect]
     Active Substance: TICAGRELOR

REACTIONS (19)
  - Cerebrovascular accident [Unknown]
  - Vascular stent occlusion [Unknown]
  - Brain neoplasm [Unknown]
  - Glaucoma [Unknown]
  - Cardiac failure congestive [Unknown]
  - Dizziness [Unknown]
  - Nausea [Unknown]
  - Blood pressure increased [Unknown]
  - Gastric haemorrhage [Unknown]
  - Haematochezia [Unknown]
  - Speech disorder [Unknown]
  - Hypoacusis [Unknown]
  - Lung disorder [Not Recovered/Not Resolved]
  - Dyspnoea [Unknown]
  - Chest discomfort [Unknown]
  - Drug ineffective [Unknown]
  - Product physical issue [Unknown]
  - Product substitution issue [Unknown]
  - Unevaluable event [Unknown]
